FAERS Safety Report 4990717-2 (Version None)
Quarter: 2006Q2

REPORT INFORMATION
  Report Type: 
  Country: None (occurrence: None)
  Receive Date: 20060427
  Receipt Date: 20060411
  Transmission Date: 20061013
  Serious: Yes (Other)
  Sender: FDA-Public Use
  Company Number: C183

PATIENT
  Age: 74 Year
  Sex: Female
  Weight: 73.0291 kg

DRUGS (7)
  1. MERETEK UBT KIT (W/ PRANACTIN) [Suspect]
     Indication: HELICOBACTER INFECTION
     Dosage: ONE POUCH PER TEST
     Dates: start: 20060403
  2. EVISTA [Concomitant]
  3. PROTONICS [Concomitant]
  4. OTC CALCIUM [Concomitant]
  5. MULTIVITAMIN [Concomitant]
  6. ASPIRIN [Concomitant]
  7. NANONEX [Concomitant]

REACTIONS (3)
  - PHARMACEUTICAL PRODUCT COMPLAINT [None]
  - RASH PAPULAR [None]
  - URTICARIA [None]
